FAERS Safety Report 13083459 (Version 2)
Quarter: 2017Q4

REPORT INFORMATION
  Report Type: Spontaneous
  Country: IT (occurrence: IT)
  Receive Date: 20170104
  Receipt Date: 20171014
  Transmission Date: 20180320
  Serious: Yes (Hospitalization, Other)
  Sender: FDA-Public Use
  Company Number: IT-BRISTOL-MYERS SQUIBB COMPANY-BMS-2016-110549

PATIENT
  Age: 76 Year
  Sex: Female
  Weight: 75 kg

DRUGS (2)
  1. ASPIRINA [Concomitant]
     Active Substance: ASPIRIN
     Indication: PRODUCT USED FOR UNKNOWN INDICATION
     Dosage: 300 MG, UNK
     Route: 048
     Dates: start: 20161001, end: 20161219
  2. COUMADIN [Suspect]
     Active Substance: WARFARIN SODIUM
     Indication: ATRIAL FIBRILLATION
     Dosage: UNK
     Route: 048
     Dates: start: 20161001, end: 20161219

REACTIONS (3)
  - Cerebral haematoma [Recovering/Resolving]
  - Injury [Unknown]
  - International normalised ratio abnormal [Unknown]

NARRATIVE: CASE EVENT DATE: 20161219
